FAERS Safety Report 7515396-1 (Version None)
Quarter: 2011Q2

REPORT INFORMATION
  Report Type: 
  Country: None (occurrence: None)
  Receive Date: 20110601
  Receipt Date: 20110512
  Transmission Date: 20111010
  Serious: No
  Sender: FDA-Public Use
  Company Number: US-B.I. PHARMACEUTICALS,INC./RIDGEFIELD-2011-BP-09402BP

PATIENT
  Sex: Male

DRUGS (15)
  1. GLUCOVANCE [Concomitant]
     Indication: DIABETES MELLITUS
  2. MECLIZINE [Concomitant]
     Indication: DIZZINESS
  3. PRADAXA [Suspect]
     Indication: ANTICOAGULANT THERAPY
     Dosage: 300 MG
     Route: 048
     Dates: start: 20110322, end: 20110325
  4. GLYBURIDE [Concomitant]
  5. ADVAIR DISKUS 100/50 [Concomitant]
     Indication: DYSPNOEA
  6. METFORMIN HCL [Concomitant]
     Indication: DIABETES MELLITUS
  7. FENOFIBRATE [Concomitant]
     Indication: BLOOD CHOLESTEROL INCREASED
  8. LEVOXYTHYROXINE [Concomitant]
     Dosage: NR
  9. JANUVIA [Concomitant]
     Indication: DIABETES MELLITUS
  10. ACTOS [Concomitant]
     Indication: DIABETES MELLITUS
  11. NEXIUM [Concomitant]
     Indication: DIABETES MELLITUS
  12. PRADAXA [Suspect]
     Indication: ISCHAEMIC HEART DISEASE PROPHYLAXIS
  13. SIMVASTATIN [Concomitant]
     Indication: BLOOD CHOLESTEROL INCREASED
  14. LEXAPRO [Concomitant]
     Dates: end: 20110301
  15. AVODART [Concomitant]
     Indication: PROSTATOMEGALY

REACTIONS (2)
  - POLLAKIURIA [None]
  - HAEMATURIA [None]
